FAERS Safety Report 15451640 (Version 1)
Quarter: 2018Q3

REPORT INFORMATION
  Report Type: Spontaneous
  Country: US (occurrence: US)
  Receive Date: 20180927
  Receipt Date: 20180927
  Transmission Date: 20181010
  Serious: No
  Sender: FDA-Public Use
  Company Number: None

PATIENT
  Age: 64 Year
  Sex: Male
  Weight: 80.74 kg

DRUGS (15)
  1. MILK THISTLE [Concomitant]
     Active Substance: DIETARY SUPPLEMENT\HERBALS\MILK THISTLE
  2. ASPIRIN. [Concomitant]
     Active Substance: ASPIRIN
  3. BERRIES [Concomitant]
  4. MSM [Concomitant]
     Active Substance: DIMETHYL SULFONE
  5. HAWAIAN ASTAXANTAIN [Concomitant]
  6. POTASSIUM [Concomitant]
     Active Substance: POTASSIUM
  7. CORDYCEPS [Concomitant]
     Active Substance: HERBALS
  8. PROZAC [Suspect]
     Active Substance: FLUOXETINE HYDROCHLORIDE
     Indication: PRODUCT USED FOR UNKNOWN INDICATION
  9. WEST WHEAT GRASS [Concomitant]
     Active Substance: PASCOPYRUM SMITHII POLLEN
  10. GARLIC. [Concomitant]
     Active Substance: GARLIC
  11. COD LIVER OIL [Concomitant]
     Active Substance: COD LIVER OIL
  12. FLAXSEED [Concomitant]
     Active Substance: FLAX SEED
  13. ALC [Concomitant]
  14. LISINOPRIL. [Concomitant]
     Active Substance: LISINOPRIL
  15. PARA [Concomitant]

REACTIONS (8)
  - Unevaluable event [None]
  - Asthenia [None]
  - Hyperhidrosis [None]
  - Tremor [None]
  - Insomnia [None]
  - Dizziness [None]
  - Nausea [None]
  - Dry mouth [None]
